FAERS Safety Report 12914928 (Version 1)
Quarter: 2016Q4

REPORT INFORMATION
  Report Type: Report from Study
  Country: US (occurrence: US)
  Receive Date: 20161106
  Receipt Date: 20161106
  Transmission Date: 20170207
  Serious: Yes (Hospitalization, Other)
  Sender: FDA-Public Use
  Company Number: US-ASTRAZENECA-2016SF07738

PATIENT
  Age: 71 Year
  Sex: Female
  Weight: 59 kg

DRUGS (12)
  1. CRESTOR [Suspect]
     Active Substance: ROSUVASTATIN CALCIUM
     Indication: BLOOD CHOLESTEROL INCREASED
     Route: 048
     Dates: start: 2006
  2. PROPRANOLOL [Concomitant]
     Active Substance: PROPRANOLOL\PROPRANOLOL HYDROCHLORIDE
     Indication: HEART RATE IRREGULAR
     Route: 048
  3. PREVACID [Concomitant]
     Active Substance: LANSOPRAZOLE
     Indication: GASTROOESOPHAGEAL REFLUX DISEASE
     Dosage: GENERIC PREVACID OTC, 15 MILLIGRAMS DAILY.
     Route: 048
     Dates: start: 2013
  4. LORTREL [Concomitant]
     Indication: BLOOD PRESSURE ABNORMAL
     Dosage: 5/20 MILLIGRAMS, TWO TIMES A DAY
     Route: 048
     Dates: start: 2011
  5. INDERAL [Concomitant]
     Active Substance: PROPRANOLOL HYDROCHLORIDE
     Indication: HEART RATE IRREGULAR
     Route: 048
  6. AMLODIPINE BENAZEPRIL [Concomitant]
     Active Substance: AMLODIPINE BESYLATE\BENAZEPRIL HYDROCHLORIDE
     Indication: BLOOD PRESSURE ABNORMAL
     Route: 048
  7. INDERAL [Concomitant]
     Active Substance: PROPRANOLOL HYDROCHLORIDE
     Indication: BLOOD PRESSURE ABNORMAL
     Route: 048
  8. PREVACID [Concomitant]
     Active Substance: LANSOPRAZOLE
     Indication: GASTROOESOPHAGEAL REFLUX DISEASE
     Route: 048
     Dates: end: 2013
  9. PROPRANOLOL [Concomitant]
     Active Substance: PROPRANOLOL\PROPRANOLOL HYDROCHLORIDE
     Indication: BLOOD PRESSURE ABNORMAL
     Route: 048
  10. ISOSORBIDE MN ER [Concomitant]
     Active Substance: ISOSORBIDE
     Indication: CARDIAC DISORDER
     Route: 048
  11. ALENGRONATE [Concomitant]
     Indication: OSTEOPOROSIS
     Route: 048
     Dates: start: 2015
  12. LOSARTAN POTASSIUM. [Concomitant]
     Active Substance: LOSARTAN POTASSIUM
     Indication: BLOOD TEST ABNORMAL
     Route: 048
     Dates: start: 2015

REACTIONS (17)
  - Osteoporosis [Unknown]
  - Pain in extremity [Unknown]
  - Blood triglycerides increased [Unknown]
  - Carotid artery occlusion [Unknown]
  - Hypertension [Unknown]
  - Arthralgia [Unknown]
  - Dysphagia [Unknown]
  - Abdominal pain upper [Unknown]
  - Weight decreased [Unknown]
  - Arrhythmia [Unknown]
  - Cartilage injury [Unknown]
  - Gastrooesophageal reflux disease [Unknown]
  - Arthritis [Unknown]
  - Blood cholesterol increased [Unknown]
  - Arteriosclerosis [Unknown]
  - Arterial occlusive disease [Unknown]
  - Blood test abnormal [Unknown]

NARRATIVE: CASE EVENT DATE: 2011
